FAERS Safety Report 18486353 (Version 1)
Quarter: 2020Q4

REPORT INFORMATION
  Report Type: Spontaneous
  Country: US (occurrence: US)
  Receive Date: 20201110
  Receipt Date: 20201110
  Transmission Date: 20210114
  Serious: Yes (Other)
  Sender: FDA-Public Use
  Company Number: None

PATIENT
  Age: 60 Year
  Sex: Female
  Weight: 69.75 kg

DRUGS (5)
  1. BUSPARONE [Concomitant]
  2. SERTRALINE [Concomitant]
     Active Substance: SERTRALINE HYDROCHLORIDE
  3. LORATIDIE [Concomitant]
  4. ASPIRIN. [Concomitant]
     Active Substance: ASPIRIN
  5. METHOTREXATE. [Suspect]
     Active Substance: METHOTREXATE
     Indication: PSORIATIC ARTHROPATHY
     Dosage: ?          QUANTITY:5 TABLET(S);OTHER FREQUENCY:1 TIME A WEEK;?
     Route: 048
     Dates: start: 20200605, end: 20201011

REACTIONS (3)
  - Stomatitis [None]
  - Gastrointestinal haemorrhage [None]
  - Muscle spasms [None]

NARRATIVE: CASE EVENT DATE: 20201011
